FAERS Safety Report 4930947-9 (Version None)
Quarter: 2006Q1

REPORT INFORMATION
  Report Type: 
  Country: None (occurrence: None)
  Receive Date: 20060227
  Receipt Date: 20060217
  Transmission Date: 20060701
  Serious: Yes (Death, Hospitalization)
  Sender: FDA-Public Use
  Company Number: 163-20785-06020406

PATIENT
  Age: 72 Year
  Sex: Male
  Weight: 72.1219 kg

DRUGS (4)
  1. THALOMID [Suspect]
     Indication: MULTIPLE MYELOMA
     Dosage: 50 - 200MG, QD, ORAL
     Route: 048
     Dates: start: 20031002, end: 20051201
  2. DECADRON [Suspect]
     Indication: MULTIPLE MYELOMA
     Dosage: PULSE
  3. VELCADE [Suspect]
     Indication: MULTIPLE MYELOMA
     Dosage: 2 CYCLES
  4. LISINOPRIL [Concomitant]

REACTIONS (23)
  - ANAEMIA [None]
  - BRONCHITIS [None]
  - CONDITION AGGRAVATED [None]
  - DEHYDRATION [None]
  - DIZZINESS POSTURAL [None]
  - DYSPNOEA EXERTIONAL [None]
  - GENERALISED ERYTHEMA [None]
  - HYPERTENSION [None]
  - HYPERVISCOSITY SYNDROME [None]
  - HYPOVOLAEMIA [None]
  - LIGHT CHAIN DISEASE [None]
  - MALIGNANT NEOPLASM PROGRESSION [None]
  - METABOLIC ACIDOSIS [None]
  - MULTIPLE MYELOMA [None]
  - NEUROPATHY PERIPHERAL [None]
  - PHARYNGOLARYNGEAL PAIN [None]
  - PITTING OEDEMA [None]
  - PROTEINURIA [None]
  - PSEUDOMONAL SEPSIS [None]
  - RENAL FAILURE ACUTE [None]
  - THROMBOCYTOPENIA [None]
  - URINARY TRACT INFECTION [None]
  - URINARY TRACT OBSTRUCTION [None]
